FAERS Safety Report 7688865-1 (Version None)
Quarter: 2011Q3

REPORT INFORMATION
  Report Type: 
  Country: None (occurrence: None)
  Receive Date: 20110817
  Receipt Date: 20110803
  Transmission Date: 20111222
  Serious: Yes (Hospitalization, Other)
  Sender: FDA-Public Use
  Company Number: PHBS2010DE00576

PATIENT
  Sex: Female
  Weight: 80 kg

DRUGS (16)
  1. RASILEZ HCT [Suspect]
     Indication: HYPERTENSION
     Dosage: 1 DF, QD
     Route: 048
     Dates: start: 20100301
  2. EXFORGE [Suspect]
     Dosage: 1 DF, BID
     Route: 048
     Dates: start: 20100301, end: 20110130
  3. MOXONIDINE [Concomitant]
     Indication: HYPERTENSION
     Dosage: 1 DF, BID
     Route: 048
     Dates: start: 20100712, end: 20110110
  4. METOPROLOL SUCCINATE [Concomitant]
     Indication: HYPERTENSION
     Dosage: 190 MG, QD
     Dates: start: 20080101
  5. RASILEZ (ALISKIREN) [Concomitant]
     Dates: start: 20100414
  6. MINOXIDIL [Concomitant]
     Indication: HYPERTENSION
     Dosage: 2.5 MG, QD
     Route: 048
     Dates: start: 20101104, end: 20110110
  7. NOVALGIN [Concomitant]
     Indication: OSTEOPOROSIS
     Dates: start: 20080101
  8. DOPEGYT [Concomitant]
     Indication: HYPERTENSION
     Dosage: 375 MG, QD
     Dates: start: 20050101
  9. EXFORGE HCT [Suspect]
     Dosage: 1 DF, UNK
     Route: 048
     Dates: start: 20101216
  10. DIOVAN HCT [Suspect]
     Indication: HYPERTENSION
     Dosage: 1 DF, QD
     Route: 048
     Dates: start: 20110117, end: 20110130
  11. ASPIRIN [Concomitant]
     Indication: CORONARY ARTERY DISEASE
     Dosage: 1 DF, QD
     Dates: start: 20050517
  12. VALSARTAN [Suspect]
     Indication: ESSENTIAL HYPERTENSION
     Dosage: 160 MG, PER DAY
     Route: 048
     Dates: start: 20090109, end: 20100101
  13. EXFORGE [Suspect]
     Indication: HYPERTENSION
     Dosage: 1 DF, BID
     Route: 048
     Dates: start: 20080101
  14. METOPROLOL TARTRATE [Concomitant]
     Dosage: 142.5 MG, DAILY
     Dates: start: 20081014
  15. TORSEMIDE [Concomitant]
     Indication: HYPERTENSION
     Dosage: 15 MG, QD
     Route: 048
     Dates: start: 20080101
  16. ACE INHIBITOR NOS [Concomitant]
     Indication: HYPERTENSION
     Route: 048
     Dates: start: 20110101

REACTIONS (4)
  - DERMATITIS ALLERGIC [None]
  - HYPERTENSIVE CRISIS [None]
  - ARTERIOSCLEROSIS CORONARY ARTERY [None]
  - ACUTE MYOCARDIAL INFARCTION [None]
